FAERS Safety Report 18402616 (Version 1)
Quarter: 2020Q4

REPORT INFORMATION
  Report Type: Report from Study
  Country: NL (occurrence: NL)
  Receive Date: 20201020
  Receipt Date: 20201020
  Transmission Date: 20210114
  Serious: Yes (Other)
  Sender: FDA-Public Use
  Company Number: NL-TEVA-2020-NL-1839197

PATIENT
  Age: 60 Year
  Sex: Female

DRUGS (3)
  1. MERCAPTOPURINE / BRAND NAME NOT SPECIFIED [Concomitant]
     Dosage: 25 MILLIGRAM DAILY; THERAPY END DATE : ASKED BUT UNKNOWN
     Dates: start: 20200117
  2. CALCIUMCARB/COLECALC KAUWTB 1,25G/800IE (500MG CA) / CALCI CHEW D3 KAU [Concomitant]
     Dosage: 1MG / IE, 1X / D, THERAPY END DATE : ASKED BUT UNKNOWN
     Dates: start: 20200130
  3. NAPROXEN TABLET 500MG / BRAND NAME NOT SPECIFIED [Suspect]
     Active Substance: NAPROXEN
     Indication: COLITIS ULCERATIVE
     Dosage: THERAPY START DATE; THERAPY END DATE : ASKED BUT UNKNOWN

REACTIONS (3)
  - Haematochezia [Recovered/Resolved]
  - Abdominal pain [Recovered/Resolved]
  - Mucous stools [Recovered/Resolved]

NARRATIVE: CASE EVENT DATE: 20200902
